FAERS Safety Report 7313938-2 (Version None)
Quarter: 2011Q1

REPORT INFORMATION
  Report Type: 
  Country: None (occurrence: None)
  Receive Date: 20110225
  Receipt Date: 20110214
  Transmission Date: 20110831
  Serious: Yes (Death, Hospitalization, Other)
  Sender: FDA-Public Use
  Company Number: US-ACTELION-A-NJ2008-20657

PATIENT

DRUGS (4)
  1. SILDENAFIL [Concomitant]
     Indication: PULMONARY ARTERIAL HYPERTENSION
  2. TRACLEER [Suspect]
     Indication: PULMONARY ARTERIAL HYPERTENSION
     Dosage: 31.25 MG, BID
     Route: 048
     Dates: start: 20050601, end: 20080326
  3. TRACLEER [Suspect]
     Dosage: 31.25 MG, QD
     Route: 048
     Dates: start: 20050401
  4. COUMADIN [Concomitant]

REACTIONS (6)
  - LIVER FUNCTION TEST ABNORMAL [None]
  - OXYGEN CONSUMPTION INCREASED [None]
  - DYSPNOEA [None]
  - BIOPSY LUNG [None]
  - ACUTE RESPIRATORY DISTRESS SYNDROME [None]
  - MULTI-ORGAN FAILURE [None]
